FAERS Safety Report 4657950-0 (Version None)
Quarter: 2005Q2

REPORT INFORMATION
  Report Type: 
  Country: None (occurrence: None)
  Receive Date: 20050510
  Receipt Date: 20041122
  Transmission Date: 20051028
  Serious: Yes (Hospitalization)
  Sender: FDA-Public Use
  Company Number: 2004GB02811

PATIENT
  Age: 81 Year
  Sex: Male

DRUGS (8)
  1. CRESTOR [Suspect]
     Indication: BLOOD CHOLESTEROL INCREASED
     Route: 048
     Dates: start: 20040901, end: 20041103
  2. CRESTOR [Suspect]
     Route: 048
  3. ASPIRIN [Concomitant]
     Route: 065
  4. ATENOLOL [Concomitant]
     Route: 065
  5. ZOLADEX [Concomitant]
     Route: 065
  6. MONOMAX [Concomitant]
     Route: 065
  7. FLOMAX [Concomitant]
     Route: 065
  8. BICALUTAMIDE [Concomitant]
     Route: 065

REACTIONS (2)
  - MALAISE [None]
  - RENAL FAILURE ACUTE [None]
